FAERS Safety Report 8771121 (Version 2)
Quarter: 2012Q4

REPORT INFORMATION
  Report Type: Report from Study
  Country: MX (occurrence: MX)
  Receive Date: 20120906
  Receipt Date: 20120925
  Transmission Date: 20130627
  Serious: Yes (Hospitalization, Disabling)
  Sender: FDA-Public Use
  Company Number: MX-ROCHE-1111266

PATIENT
  Age: 46 Year
  Sex: Female
  Weight: 73 kg

DRUGS (7)
  1. XELODA [Suspect]
     Indication: BREAST CANCER
     Dosage: for 14 days, and one rest week
     Route: 048
     Dates: start: 201112, end: 201205
  2. XELODA [Suspect]
     Indication: METASTASES TO BONE
     Route: 048
     Dates: start: 20120603
  3. OXALIPLATIN [Suspect]
     Indication: BREAST CANCER
     Dosage: every 28 days
     Route: 042
     Dates: start: 20120603
  4. OXALIPLATIN [Suspect]
     Indication: METASTASES TO BONE
  5. LEVOTHYROXINE [Concomitant]
     Indication: HYPOTHYROIDISM
     Route: 048
  6. CABERGOLINE [Concomitant]
     Dosage: Indication: PITUITARY  MICROADENOMA
     Route: 048
  7. ZOLEDRONIC ACID [Concomitant]
     Indication: METASTASES TO BONE
     Route: 042

REACTIONS (13)
  - Gastric operation [Recovered/Resolved]
  - Muscle rigidity [Not Recovered/Not Resolved]
  - Pain in extremity [Not Recovered/Not Resolved]
  - Palmar-plantar erythrodysaesthesia syndrome [Not Recovered/Not Resolved]
  - Constipation [Not Recovered/Not Resolved]
  - Insomnia [Not Recovered/Not Resolved]
  - Nausea [Not Recovered/Not Resolved]
  - Vomiting [Not Recovered/Not Resolved]
  - Oropharyngeal pain [Not Recovered/Not Resolved]
  - Pain in jaw [Not Recovered/Not Resolved]
  - Eyelid disorder [Not Recovered/Not Resolved]
  - Weight decreased [Not Recovered/Not Resolved]
  - Decreased appetite [Not Recovered/Not Resolved]
